FAERS Safety Report 13134950 (Version 2)
Quarter: 2017Q1

REPORT INFORMATION
  Report Type: Spontaneous
  Country: JP (occurrence: JP)
  Receive Date: 20170120
  Receipt Date: 20170131
  Transmission Date: 20170428
  Serious: Yes (Other)
  Sender: FDA-Public Use
  Company Number: JP-ELI_LILLY_AND_COMPANY-JP201701005731

PATIENT
  Age: 85 Year
  Sex: Female
  Weight: 30.7 kg

DRUGS (2)
  1. FORTEO [Suspect]
     Active Substance: TERIPARATIDE
     Indication: PRODUCT USED FOR UNKNOWN INDICATION
     Dosage: 20 UG, QD
     Route: 058
     Dates: start: 20160629, end: 20170116
  2. LOXOPROFEN                         /00890702/ [Suspect]
     Active Substance: LOXOPROFEN
     Indication: ARTHRALGIA
     Dosage: 60 MG, QD
     Route: 048
     Dates: start: 20160815, end: 20170113

REACTIONS (1)
  - Creatinine renal clearance decreased [Unknown]

NARRATIVE: CASE EVENT DATE: 20170113
